FAERS Safety Report 6187888-1 (Version None)
Quarter: 2009Q2

REPORT INFORMATION
  Report Type: 
  Country: None (occurrence: None)
  Receive Date: 20090511
  Receipt Date: 20090511
  Transmission Date: 20091009
  Serious: No
  Sender: FDA-Public Use
  Company Number: None

PATIENT
  Sex: Male
  Weight: 60.3284 kg

DRUGS (2)
  1. AMIFOSTINE [Suspect]
     Indication: DRY MOUTH
     Dosage: 500MG M-F SQ  (15 DOSES SINCE  3/11/09)
     Route: 058
  2. AMIFOSTINE [Suspect]
     Indication: HEAD AND NECK CANCER
     Dosage: 500MG M-F SQ  (15 DOSES SINCE  3/11/09)
     Route: 058

REACTIONS (2)
  - PRURITUS [None]
  - RASH MACULO-PAPULAR [None]
